FAERS Safety Report 5714857-5 (Version None)
Quarter: 2008Q2

REPORT INFORMATION
  Report Type: 
  Country: None (occurrence: None)
  Receive Date: 20080423
  Receipt Date: 20070411
  Transmission Date: 20081010
  Serious: Yes (Hospitalization)
  Sender: FDA-Public Use
  Company Number: US-BAYER-US-2006-035817

PATIENT

DRUGS (1)
  1. LEUKINE [Suspect]
     Indication: NEUTROPENIA
     Dosage: UNIT DOSE: 500 ?G
     Route: 058

REACTIONS (2)
  - CARDIAC FAILURE [None]
  - RESPIRATORY DISTRESS [None]
